FAERS Safety Report 24749681 (Version 3)
Quarter: 2025Q1

REPORT INFORMATION
  Report Type: Report from Study
  Country: JP (occurrence: JP)
  Receive Date: 20241218
  Receipt Date: 20250103
  Transmission Date: 20250409
  Serious: Yes (Hospitalization, Other)
  Sender: PFIZER
  Company Number: JP-ASTELLAS-2022JP006129

PATIENT
  Age: 81 Year
  Sex: Female
  Weight: 48 kg

DRUGS (8)
  1. PADCEV [Suspect]
     Active Substance: ENFORTUMAB VEDOTIN-EJFV
     Indication: Bladder cancer
     Route: 041
     Dates: start: 20220126, end: 20220202
  2. PADCEV [Suspect]
     Active Substance: ENFORTUMAB VEDOTIN-EJFV
     Route: 041
     Dates: start: 20220301, end: 20220315
  3. SOLU-MEDROL [Suspect]
     Active Substance: METHYLPREDNISOLONE SODIUM SUCCINATE
     Indication: Rash
     Dosage: 500 MG, 1X/DAY
     Route: 042
     Dates: start: 20220322, end: 20220324
  4. SOLU-MEDROL [Suspect]
     Active Substance: METHYLPREDNISOLONE SODIUM SUCCINATE
     Indication: Stevens-Johnson syndrome
  5. PREDONINE [Suspect]
     Active Substance: PREDNISOLONE
     Indication: Rash
     Dosage: 75 MG, 1X/DAY
     Route: 042
     Dates: start: 20220325, end: 20220328
  6. PREDONINE [Suspect]
     Active Substance: PREDNISOLONE
     Indication: Stevens-Johnson syndrome
     Dosage: 60 MG, 1X/DAY
     Route: 042
     Dates: start: 20220329, end: 20220331
  7. PREDONINE [Suspect]
     Active Substance: PREDNISOLONE
     Dosage: 45 MG, 1X/DAY
     Route: 042
     Dates: start: 20220401, end: 20220405
  8. BETAMETHASONE SODIUM PHOSPHATE [Concomitant]
     Active Substance: BETAMETHASONE SODIUM PHOSPHATE
     Indication: Rash
     Route: 048

REACTIONS (4)
  - Stevens-Johnson syndrome [Recovered/Resolved]
  - Febrile neutropenia [Unknown]
  - Rash [Recovering/Resolving]
  - Hyperglycaemia [Recovering/Resolving]

NARRATIVE: CASE EVENT DATE: 20220308
